FAERS Safety Report 7199731-2 (Version None)
Quarter: 2010Q4

REPORT INFORMATION
  Report Type: 
  Country: None (occurrence: None)
  Receive Date: 20101228
  Receipt Date: 20101220
  Transmission Date: 20110411
  Serious: Yes (Other)
  Sender: FDA-Public Use
  Company Number: US-JNJFOC-20100509017

PATIENT
  Sex: Female

DRUGS (2)
  1. LEVAQUIN [Suspect]
     Indication: URINARY TRACT INFECTION
     Route: 048
  2. LEVAQUIN [Suspect]
     Indication: ILL-DEFINED DISORDER
     Route: 042

REACTIONS (7)
  - ARTHRALGIA [None]
  - BURSITIS [None]
  - HYPOKINESIA [None]
  - MUSCLE RUPTURE [None]
  - PAIN [None]
  - ROTATOR CUFF SYNDROME [None]
  - TENDON RUPTURE [None]
